FAERS Safety Report 10549486 (Version 2)
Quarter: 2015Q1

REPORT INFORMATION
  Report Type: Spontaneous
  Country: US (occurrence: None)
  Receive Date: 20141020
  Receipt Date: 20150120
  Transmission Date: 20150720
  Serious: No
  Sender: FDA-Public Use
  Company Number: AEGR000583

PATIENT
  Age: 68 Year
  Sex: Female
  Weight: 69.8 kg

DRUGS (11)
  1. SINGULAIR (MONTELUKAST SODIUM) [Concomitant]
  2. GAS RELIEF (SIMETICONE) [Concomitant]
  3. BENZONATATE. [Concomitant]
     Active Substance: BENZONATATE
  4. FEXOFENADINE [Concomitant]
     Active Substance: FEXOFENADINE\FEXOFENADINE HYDROCHLORIDE
  5. SYMBICORT [Concomitant]
     Active Substance: BUDESONIDE\FORMOTEROL FUMARATE DIHYDRATE
  6. PROAIR HFA (SALBUTAMOLSULFATE) [Concomitant]
  7. PREDNISOL (PREDNISOLONE SODIUM PHOSPHATE) [Concomitant]
  8. VITAMIN B NOS [Concomitant]
     Active Substance: VITAMIN B
  9. OMEPRAZOLE. [Concomitant]
     Active Substance: OMEPRAZOLE
  10. CRESTOR [Concomitant]
     Active Substance: ROSUVASTATIN CALCIUM
  11. JUXTAPID [Suspect]
     Active Substance: LOMITAPIDE MESYLATE
     Indication: TYPE IIA HYPERLIPIDAEMIA
     Route: 048
     Dates: start: 20140613

REACTIONS (3)
  - Nausea [None]
  - Pain in extremity [None]
  - Arthralgia [None]

NARRATIVE: CASE EVENT DATE: 201406
